FAERS Safety Report 9372345 (Version 2)
Quarter: 2013Q3

REPORT INFORMATION
  Report Type: Report from Study
  Country: IN (occurrence: IN)
  Receive Date: 20130627
  Receipt Date: 20130710
  Transmission Date: 20140515
  Serious: Yes (Other)
  Sender: FDA-Public Use
  Company Number: IN-SANOFI-AVENTIS-2013SA061984

PATIENT
  Age: 28 Year
  Sex: Female

DRUGS (2)
  1. TAXOTERE [Suspect]
     Indication: BREAST CANCER
     Dosage: DOSE:120 UNIT(S)
     Route: 042
     Dates: start: 20130325
  2. NEUPOGEN [Concomitant]

REACTIONS (13)
  - Abasia [Recovering/Resolving]
  - Aphagia [Recovering/Resolving]
  - Diarrhoea [Recovered/Resolved]
  - Pain [Recovered/Resolved]
  - Local swelling [Recovered/Resolved]
  - Nail discolouration [Recovered/Resolved]
  - Skin discolouration [Recovered/Resolved]
  - Ageusia [Recovering/Resolving]
  - Hyperchlorhydria [Recovering/Resolving]
  - Insomnia [Recovered/Resolved]
  - Asthenia [Recovering/Resolving]
  - Pain in extremity [Recovered/Resolved]
  - Vomiting [Recovered/Resolved]
